FAERS Safety Report 4589183-0 (Version None)
Quarter: 2005Q1

REPORT INFORMATION
  Report Type: 
  Country: None (occurrence: None)
  Receive Date: 20050215
  Receipt Date: 20050215
  Transmission Date: 20050727
  Serious: Yes (Other)
  Sender: FDA-Public Use
  Company Number: None

PATIENT
  Age: 56 Year
  Sex: Female
  Weight: 78.9259 kg

DRUGS (2)
  1. ABILIFY [Suspect]
     Indication: PARANOIA
     Dosage: 15 MG  EVERY OTHER DAY ORAL
     Route: 048
     Dates: start: 20031101, end: 20050111
  2. BENADRYL [Concomitant]

REACTIONS (3)
  - GLOSSITIS [None]
  - PRURITUS [None]
  - RESTLESS LEGS SYNDROME [None]
